FAERS Safety Report 8961225 (Version 1)
Quarter: 2012Q4

REPORT INFORMATION
  Report Type: 
  Country: US (occurrence: US)
  Receive Date: 20121212
  Receipt Date: 20121212
  Transmission Date: 20130627
  Serious: Yes (Hospitalization)
  Sender: FDA-Public Use
  Company Number: US-ACTELION-A-NJ2012-75851

PATIENT
  Age: 56 Year
  Sex: Female

DRUGS (1)
  1. TRACLEER [Suspect]
     Indication: PULMONARY ARTERIAL HYPERTENSION
     Dosage: UNK
     Route: 048
     Dates: start: 20111130

REACTIONS (7)
  - Endotracheal intubation [Unknown]
  - Infected cyst [Unknown]
  - Cyst removal [Unknown]
  - Throat lesion [Unknown]
  - Clostridium difficile infection [Unknown]
  - Oral candidiasis [Unknown]
  - Carbon dioxide increased [Unknown]
